FAERS Safety Report 5884104-2 (Version None)
Quarter: 2008Q3

REPORT INFORMATION
  Report Type: 
  Country: None (occurrence: None)
  Receive Date: 20080915
  Receipt Date: 20080723
  Transmission Date: 20090109
  Serious: Yes (Other)
  Sender: FDA-Public Use
  Company Number: US-PURDUE-USA_2008_0034857

PATIENT
  Sex: Female
  Weight: 49 kg

DRUGS (2)
  1. OXYCONTIN [Suspect]
     Indication: PAIN
     Dosage: 20 MG, TID
     Dates: start: 20010101, end: 20010101
  2. LORTAB [Concomitant]
     Dosage: 7.5 UNK, UNK

REACTIONS (5)
  - AMNESIA [None]
  - GENERAL PHYSICAL HEALTH DETERIORATION [None]
  - ROAD TRAFFIC ACCIDENT [None]
  - SUICIDAL IDEATION [None]
  - WEIGHT DECREASED [None]
